FAERS Safety Report 21386447 (Version 1)
Quarter: 2022Q3

REPORT INFORMATION
  Report Type: Spontaneous
  Country: DE (occurrence: DE)
  Receive Date: 20220928
  Receipt Date: 20220928
  Transmission Date: 20221027
  Serious: Yes (Hospitalization, Other)
  Sender: FDA-Public Use
  Company Number: DE-NOVARTISPH-NVSC2022DE217098

PATIENT
  Age: 81 Year
  Sex: Male
  Weight: 65 kg

DRUGS (3)
  1. TOPOTECAN [Suspect]
     Active Substance: TOPOTECAN HYDROCHLORIDE
     Indication: Product used for unknown indication
     Dosage: 1 MG/QM, NACH SCHEMA
     Route: 065
  2. ESOMEPRAZOLE [Concomitant]
     Active Substance: ESOMEPRAZOLE
     Indication: Product used for unknown indication
     Dosage: 2 MG, QD (2-0-0-0, RETARD-TABLETTEN)
     Route: 048
  3. SPIRONOLACTONE [Concomitant]
     Active Substance: SPIRONOLACTONE
     Indication: Product used for unknown indication
     Dosage: 5 MG, QD (0.5-0-0-0, TABLETTEN)
     Route: 048

REACTIONS (3)
  - Depressed level of consciousness [Unknown]
  - Abdominal pain [Unknown]
  - Fatigue [Unknown]
